FAERS Safety Report 23654228 (Version 1)
Quarter: 2024Q1

REPORT INFORMATION
  Report Type: Spontaneous
  Country: US (occurrence: None)
  Receive Date: 20240319
  Receipt Date: 20240319
  Transmission Date: 20240410
  Serious: Yes (Other)
  Sender: FDA-Public Use
  Company Number: None

PATIENT
  Age: 70 Year
  Sex: Male
  Weight: 108.86 kg

DRUGS (10)
  1. CIPROFLOXACIN [Suspect]
     Active Substance: CIPROFLOXACIN
     Indication: Infection
     Dosage: 60 ONCE DAILY MOUTH?
     Route: 048
     Dates: start: 202209, end: 202303
  2. CALCIUM [Concomitant]
     Active Substance: CALCIUM
  3. Prostate supplements [Concomitant]
  4. DIMETHYL SULFONE [Concomitant]
     Active Substance: DIMETHYL SULFONE
  5. HERBALS\TURMERIC [Concomitant]
     Active Substance: HERBALS\TURMERIC
  6. FISH OIL [Concomitant]
     Active Substance: FISH OIL
  7. LEVOCARNITINE [Concomitant]
     Active Substance: LEVOCARNITINE
  8. amino acid compounds [Concomitant]
  9. LUNESTA [Concomitant]
     Active Substance: ESZOPICLONE
  10. ESZOPICLONE [Concomitant]
     Active Substance: ESZOPICLONE

REACTIONS (3)
  - Tendon pain [None]
  - Tendon injury [None]
  - Arthralgia [None]

NARRATIVE: CASE EVENT DATE: 20230601
